FAERS Safety Report 5335675-6 (Version None)
Quarter: 2007Q2

REPORT INFORMATION
  Report Type: 
  Country: None (occurrence: None)
  Receive Date: 20070322
  Receipt Date: 20070212
  Transmission Date: 20071010
  Serious: No
  Sender: FDA-Public Use
  Company Number: 2007USA000414

PATIENT
  Sex: Male

DRUGS (5)
  1. VESICARE [Suspect]
     Indication: HYPERTONIC BLADDER
     Dosage: 10 MG, ORAL
     Route: 048
     Dates: start: 20070104, end: 20070118
  2. LISINOPRIL [Concomitant]
  3. METFORMIN(METFORMIN HYDROCHLORIDE) [Concomitant]
  4. LOPID [Concomitant]
  5. LANTUS [Concomitant]

REACTIONS (1)
  - CONSTIPATION [None]
